FAERS Safety Report 19446905 (Version 1)
Quarter: 2021Q2

REPORT INFORMATION
  Report Type: Spontaneous
  Country: US (occurrence: US)
  Receive Date: 20210622
  Receipt Date: 20210622
  Transmission Date: 20210717
  Serious: No
  Sender: FDA-Public Use
  Company Number: US-SA-2021SA204030

PATIENT
  Age: 68 Year
  Sex: Female

DRUGS (1)
  1. AUBAGIO [Suspect]
     Active Substance: TERIFLUNOMIDE
     Indication: MULTIPLE SCLEROSIS
     Route: 048
     Dates: start: 20210204

REACTIONS (9)
  - Gastrointestinal disorder [Unknown]
  - Fatigue [Unknown]
  - Muscle spasticity [Unknown]
  - Depression [Unknown]
  - Cognitive disorder [Unknown]
  - Fall [Unknown]
  - Musculoskeletal stiffness [Unknown]
  - Bladder disorder [Unknown]
  - Movement disorder [Unknown]

NARRATIVE: CASE EVENT DATE: 20210615
